FAERS Safety Report 8835286 (Version 2)
Quarter: 2015Q3

REPORT INFORMATION
  Report Type: Report from Study
  Country: US (occurrence: US)
  Receive Date: 20121011
  Receipt Date: 20150708
  Transmission Date: 20151125
  Serious: Yes (Death)
  Sender: FDA-Public Use
  Company Number: US-ROCHE-1123924

PATIENT
  Sex: Male

DRUGS (1)
  1. PROTROPIN [Suspect]
     Active Substance: SOMATREM
     Indication: DWARFISM
     Dosage: 0.7 MG SQ TIW FOR 4 WEEKS
     Route: 058

REACTIONS (1)
  - Death [Fatal]
